FAERS Safety Report 4597152-X (Version None)
Quarter: 2005Q1

REPORT INFORMATION
  Report Type: 
  Country: None (occurrence: None)
  Receive Date: 20050302
  Receipt Date: 20050218
  Transmission Date: 20050727
  Serious: Yes (Other)
  Sender: FDA-Public Use
  Company Number: 2005034303

PATIENT
  Sex: Female

DRUGS (2)
  1. NEOSPORIN [Suspect]
     Indication: OPEN WOUND
     Dosage: DAILY, TOPICAL
     Route: 061
     Dates: start: 19990101
  2. POLYSPORIN OINTMENT (POLYMYXIN B SULFATE, BACITRACIN ZINC) [Concomitant]
     Indication: LOCALISED INFECTION
     Dosage: TOPICAL
     Route: 061

REACTIONS (3)
  - LOCALISED INFECTION [None]
  - NERVE INJURY [None]
  - SKIN DISCOLOURATION [None]
